FAERS Safety Report 15481764 (Version 1)
Quarter: 2018Q4

REPORT INFORMATION
  Report Type: Spontaneous
  Country: US (occurrence: US)
  Receive Date: 20181003
  Receipt Date: 20181003
  Transmission Date: 20190205
  Serious: Yes (Disabling)
  Sender: FDA-Public Use
  Company Number: None

PATIENT
  Age: 47 Year
  Sex: Female
  Weight: 63 kg

DRUGS (3)
  1. PROBIOTIC [Concomitant]
     Active Substance: PROBIOTICS NOS
  2. AIMOVIG [Suspect]
     Active Substance: ERENUMAB-AOOE
     Indication: MIGRAINE
     Dosage: ?          QUANTITY:2 INJECTION(S);OTHER FREQUENCY:MONTHLY;OTHER ROUTE:INTO THIGH?
     Dates: start: 20180911, end: 20180911
  3. ALLEGRA [Concomitant]
     Active Substance: FEXOFENADINE HYDROCHLORIDE

REACTIONS (17)
  - Chest discomfort [None]
  - Anxiety [None]
  - Dysphagia [None]
  - Influenza like illness [None]
  - Throat tightness [None]
  - Arthralgia [None]
  - Fall [None]
  - Breast tenderness [None]
  - Dyspnoea [None]
  - Drug ineffective [None]
  - Dysgeusia [None]
  - Throat irritation [None]
  - Asthenia [None]
  - Emotional disorder [None]
  - Oropharyngeal pain [None]
  - Breast pain [None]
  - Clumsiness [None]

NARRATIVE: CASE EVENT DATE: 20180911
